FAERS Safety Report 6135786-1 (Version None)
Quarter: 2009Q1

REPORT INFORMATION
  Report Type: 
  Country: None (occurrence: None)
  Receive Date: 20090327
  Receipt Date: 20090324
  Transmission Date: 20090719
  Serious: Yes (Hospitalization)
  Sender: FDA-Public Use
  Company Number: BR-B.I. PHARMACEUTICALS,INC./RIDGEFIELD-2009-BR-00246BR

PATIENT
  Age: 71 Year
  Sex: Female
  Weight: 50 kg

DRUGS (6)
  1. BEROTEC [Suspect]
     Indication: DYSPNOEA
     Dosage: SEE NARRATIVE
     Route: 055
  2. BEROTEC [Suspect]
     Route: 055
     Dates: start: 20080101
  3. ATROVENT [Suspect]
     Indication: DYSPNOEA
     Dosage: SEE NARRATIVE
     Route: 055
  4. ENALAPRIL [Concomitant]
     Indication: HYPERTENSION
  5. OTHER MEDICATIONS FOR NON-SPECIFIED TREATMENT [Concomitant]
  6. PHYSIOLOGIC SOLUTION [Concomitant]
     Indication: MEDICATION DILUTION
     Dosage: SEE NARRATIVE
     Route: 055

REACTIONS (4)
  - CATARACT [None]
  - DYSPNOEA [None]
  - HALLUCINATION [None]
  - TREMOR [None]
